FAERS Safety Report 12836906 (Version 2)
Quarter: 2016Q4

REPORT INFORMATION
  Report Type: Spontaneous
  Country: CZ (occurrence: CZ)
  Receive Date: 20161011
  Receipt Date: 20161206
  Transmission Date: 20170207
  Serious: Yes (Other)
  Sender: FDA-Public Use
  Company Number: CZ-TEVA-698267ROM

PATIENT
  Age: 43 Year
  Sex: Male

DRUGS (3)
  1. CISPLATIN. [Suspect]
     Active Substance: CISPLATIN
     Indication: TESTICULAR GERM CELL TUMOUR MIXED
     Dosage: TWO SERIES. PART OF BEP COMBINATION
     Route: 042
     Dates: start: 200912, end: 201001
  2. BLEOMYCIN [Suspect]
     Active Substance: BLEOMYCIN SULFATE
     Indication: TESTICULAR GERM CELL TUMOUR MIXED
     Dosage: TWO SERIES. PART OF BEP COMBINATION
     Route: 042
     Dates: start: 200912, end: 201001
  3. ETOPOSIDE. [Suspect]
     Active Substance: ETOPOSIDE
     Indication: TESTICULAR GERM CELL TUMOUR MIXED
     Dosage: TWO SERIES. PART OF BEP COMBINATION
     Route: 042
     Dates: start: 200912, end: 201001

REACTIONS (5)
  - Neutropenia [Unknown]
  - Toxicity to various agents [Not Recovered/Not Resolved]
  - Nausea [Unknown]
  - Thrombocytopenia [Unknown]
  - Neuropathy peripheral [Not Recovered/Not Resolved]

NARRATIVE: CASE EVENT DATE: 2009
